FAERS Safety Report 14249490 (Version 1)
Quarter: 2017Q4

REPORT INFORMATION
  Report Type: Spontaneous
  Country: US (occurrence: US)
  Receive Date: 20171204
  Receipt Date: 20171204
  Transmission Date: 20180321
  Serious: No
  Sender: FDA-Public Use
  Company Number: US-BIOGEN-2017BI00488753

PATIENT
  Sex: Female

DRUGS (1)
  1. AVONEX [Suspect]
     Active Substance: INTERFERON BETA-1A
     Indication: MULTIPLE SCLEROSIS
     Route: 065
     Dates: start: 20040514, end: 20050201

REACTIONS (8)
  - Central nervous system lesion [Unknown]
  - Loss of consciousness [Unknown]
  - Skin disorder [Unknown]
  - Injection site pain [Unknown]
  - Multiple sclerosis relapse [Recovered/Resolved]
  - Insomnia [Unknown]
  - Thoracic outlet syndrome [Unknown]
  - Skin induration [Unknown]
